FAERS Safety Report 7177907-8 (Version None)
Quarter: 2010Q4

REPORT INFORMATION
  Report Type: 
  Country: None (occurrence: None)
  Receive Date: 20101220
  Receipt Date: 20101208
  Transmission Date: 20110411
  Serious: Yes (Other)
  Sender: FDA-Public Use
  Company Number: GB-BAYER-2010-004683

PATIENT
  Sex: Female

DRUGS (3)
  1. MIRENA [Suspect]
     Dosage: 20 MCG/24HR, CONTINUOUS
  2. DEPO-PROVERA [Suspect]
     Dosage: UNK
  3. UNCODEABLE ^UNCLASSIFIABLE^ [Suspect]
     Dosage: UNK
     Dates: start: 20100501

REACTIONS (2)
  - POSTMENOPAUSAL HAEMORRHAGE [None]
  - UTERINE CANCER [None]
